FAERS Safety Report 6311806-6 (Version None)
Quarter: 2009Q3

REPORT INFORMATION
  Report Type: 
  Country: None (occurrence: None)
  Receive Date: 20090813
  Receipt Date: 20090813
  Transmission Date: 20100115
  Serious: Yes (Disabling, Other)
  Sender: FDA-Public Use
  Company Number: None

PATIENT
  Age: 72 Year
  Sex: Female
  Weight: 70.7611 kg

DRUGS (1)
  1. BOTOX [Suspect]
     Indication: BLEPHAROSPASM
     Dosage: REC. MIN. DOSAGE ONCE @ 7 TIMES AROUND RT EYE
     Dates: start: 20090615

REACTIONS (11)
  - BLEPHAROSPASM [None]
  - CHILLS [None]
  - EYE IRRITATION [None]
  - EYE MOVEMENT DISORDER [None]
  - EYELID PTOSIS [None]
  - KERATITIS [None]
  - MUSCLE SPASMS [None]
  - NASAL DISORDER [None]
  - OCULAR HYPERAEMIA [None]
  - SWELLING [None]
  - VISION BLURRED [None]
